FAERS Safety Report 9338184 (Version 1)
Quarter: 2013Q2

REPORT INFORMATION
  Report Type: Spontaneous
  Country: CN (occurrence: CN)
  Receive Date: 20130610
  Receipt Date: 20130610
  Transmission Date: 20140414
  Serious: Yes (Other)
  Sender: FDA-Public Use
  Company Number: CN-ASTRAZENECA-2013SE30629

PATIENT
  Age: 80 Year
  Sex: Female

DRUGS (3)
  1. CRESTOR [Suspect]
     Indication: HYPERLIPIDAEMIA
     Route: 048
     Dates: start: 201303, end: 201304
  2. UNSPECIFIED DIABETES AGENT [Concomitant]
  3. UNSPECIFIED ANTIHYPERTENSIVE AGENT [Concomitant]

REACTIONS (4)
  - Cerebral infarction [Unknown]
  - Fall [Unknown]
  - Myalgia [Not Recovered/Not Resolved]
  - Drug dose omission [Unknown]
